FAERS Safety Report 6455239-0 (Version None)
Quarter: 2009Q4

REPORT INFORMATION
  Report Type: 
  Country: None (occurrence: None)
  Receive Date: 20091119
  Receipt Date: 20091026
  Transmission Date: 20100525
  Serious: Yes (Other)
  Sender: FDA-Public Use
  Company Number: 2008AP003305

PATIENT
  Age: 52 Year
  Sex: Male

DRUGS (2)
  1. BENAZEPRIL HCL           TABLETS (20 MG) [Suspect]
     Indication: HYPERTENSION
     Dosage: 20 MG;QD;PO
     Route: 048
     Dates: start: 20081104
  2. ROSUVASTATIN [Concomitant]

REACTIONS (4)
  - DRUG INEFFECTIVE [None]
  - HYPERTENSION [None]
  - PRODUCT SUBSTITUTION ISSUE [None]
  - TACHYCARDIA [None]
